FAERS Safety Report 6542597-1 (Version None)
Quarter: 2010Q1

REPORT INFORMATION
  Report Type: 
  Country: None (occurrence: None)
  Receive Date: 20100119
  Receipt Date: 20100112
  Transmission Date: 20100710
  Serious: Yes (Other)
  Sender: FDA-Public Use
  Company Number: US-GENENTECH-296882

PATIENT
  Sex: Male
  Weight: 25 kg

DRUGS (1)
  1. CATHFLO ACTIVASE [Suspect]
     Indication: THROMBOSIS PROPHYLAXIS
     Dosage: 16 MG, UNK
     Route: 050
     Dates: start: 20091130

REACTIONS (1)
  - HYPERPHOSPHATAEMIA [None]
